FAERS Safety Report 5109053-9 (Version None)
Quarter: 2006Q3

REPORT INFORMATION
  Report Type: 
  Country: None (occurrence: None)
  Receive Date: 20060918
  Receipt Date: 20060901
  Transmission Date: 20061208
  Serious: Yes (Hospitalization, Other)
  Sender: FDA-Public Use
  Company Number: 2005133319

PATIENT
  Age: 32 Year
  Sex: Female
  Weight: 113.3993 kg

DRUGS (2)
  1. CELEBREX [Suspect]
     Indication: ARTHRITIS
     Dosage: 100 MG (100 MG, 1 IN 1 D)
     Dates: start: 19980101
  2. VIOXX [Suspect]
     Indication: DRUG USE FOR UNKNOWN INDICATION

REACTIONS (9)
  - CARDIAC FAILURE CONGESTIVE [None]
  - CARDIOVASCULAR DISORDER [None]
  - CEREBROVASCULAR ACCIDENT [None]
  - FALL [None]
  - MOBILITY DECREASED [None]
  - MYOCARDIAL INFARCTION [None]
  - RENAL FAILURE [None]
  - THROMBOSIS [None]
  - VASCULAR INJURY [None]
